FAERS Safety Report 9689336 (Version 1)
Quarter: 2013Q4

REPORT INFORMATION
  Report Type: Spontaneous
  Country: NL (occurrence: NL)
  Receive Date: 20131114
  Receipt Date: 20131114
  Transmission Date: 20140711
  Serious: Yes (Other)
  Sender: FDA-Public Use
  Company Number: NL-WATSON-2013-20875

PATIENT
  Age: 80 Year
  Sex: Male
  Weight: 70 kg

DRUGS (5)
  1. METRONIDAZOLE [Suspect]
     Indication: HELICOBACTER INFECTION
     Dosage: 2 DF, BID; TABLET; 2 KEER PER DAG 2 STUK (S)
     Route: 048
     Dates: start: 20131008
  2. LANOXIN [Concomitant]
     Indication: PRODUCT USED FOR UNKNOWN INDICATION
     Dosage: 250 MICROGRAMS, DAILY; TABLET; 1 DD 1
     Route: 048
     Dates: start: 1998
  3. AMOXICILLINE                       /00249602/ [Concomitant]
     Indication: PRODUCT USED FOR UNKNOWN INDICATION
     Dosage: 1 DF, UNKNOWN; CAPSULE; DOSERING EN TOEDIENINGSVORM NIET INGEVULD; 5 DAGEN VOORAFGAAND
     Route: 065
  4. ACENOCOUMAROL [Concomitant]
     Indication: PRODUCT USED FOR UNKNOWN INDICATION
     Dosage: 1 DF, DAILY; TABLET; 1 KEER PER DAG 3 STUK (S), EXTRA INFO: 3 A 4 PER DAG (TROMBOSEDIENST)
     Route: 048
     Dates: start: 1993
  5. LEVOFLOXACINE [Concomitant]
     Indication: PRODUCT USED FOR UNKNOWN INDICATION
     Dosage: 1 DF, UNKNOWN; COATED TABLET; DOSERING NIET INGEVULD
     Route: 048
     Dates: start: 20131008

REACTIONS (4)
  - Oedema peripheral [Not Recovered/Not Resolved]
  - Tinnitus [Not Recovered/Not Resolved]
  - Dysgeusia [Not Recovered/Not Resolved]
  - Headache [Not Recovered/Not Resolved]
